FAERS Safety Report 8007638-3 (Version None)
Quarter: 2011Q4

REPORT INFORMATION
  Report Type: 
  Country: None (occurrence: None)
  Receive Date: 20111206
  Receipt Date: 20111130
  Transmission Date: 20120403
  Serious: Yes (Hospitalization, Other)
  Sender: FDA-Public Use
  Company Number: 2011029557

PATIENT
  Age: 42 Year
  Sex: Female
  Weight: 72.5755 kg

DRUGS (12)
  1. NEXIUM [Concomitant]
  2. FLEXERIL [Concomitant]
  3. TOPAMAX [Concomitant]
  4. WELLBUTRIN XL [Concomitant]
  5. HIZENTRA [Suspect]
     Indication: CONGENITAL HYPOGAMMAGLOBULINAEMIA
     Dosage: 4 GM 20 ML VIAL; 2 SITES IN 1 HOUR SUBCUTANEOUS
     Route: 058
     Dates: start: 20111110
  6. DICYCLOMINE [Concomitant]
  7. HYDROCODONE BT IBUPROFEN (HYDROCODONE W/IBUPROFEN) [Concomitant]
  8. HIZENTRA [Suspect]
     Indication: CONGENITAL HYPOGAMMAGLOBULINAEMIA
     Dosage: 8 G 1X/WEEK, 4 GM 20 ML VIAL; 40 ML IN 2-3 SITES SUBCUTANEOUS
     Route: 058
     Dates: start: 20110316
  9. DYAZIDE [Concomitant]
  10. XANAX [Concomitant]
  11. PLAQUENIL [Concomitant]
  12. IBUPROFEN [Concomitant]

REACTIONS (10)
  - NEPHROLITHIASIS [None]
  - INJECTION SITE ERYTHEMA [None]
  - INJECTION SITE PRURITUS [None]
  - BRONCHITIS [None]
  - HEADACHE [None]
  - EYE INFECTION STAPHYLOCOCCAL [None]
  - VOMITING [None]
  - NAUSEA [None]
  - NECK PAIN [None]
  - PYREXIA [None]
